FAERS Safety Report 8341257-4 (Version None)
Quarter: 2012Q2

REPORT INFORMATION
  Report Type: 
  Country: None (occurrence: None)
  Receive Date: 20120507
  Receipt Date: 20120423
  Transmission Date: 20120825
  Serious: Yes (Hospitalization)
  Sender: FDA-Public Use
  Company Number: FR-CELGENEUS-056-C5013-11090055

PATIENT
  Sex: Female
  Weight: 60 kg

DRUGS (7)
  1. LENALIDOMIDE [Suspect]
     Dosage: 10 MILLIGRAM
     Route: 048
     Dates: start: 20110623, end: 20110824
  2. CLAVULANATE POTASSIUM [Concomitant]
     Dosage: 60 MILLIGRAM
     Route: 048
     Dates: start: 20110815
  3. IBUPROFEN [Concomitant]
     Route: 048
     Dates: start: 20110804, end: 20110805
  4. PREDNISONE [Concomitant]
     Dosage: 60 MILLIGRAM
     Route: 048
     Dates: start: 20110815
  5. AMOXICILLIN [Concomitant]
     Dosage: 2 GRAM
     Route: 048
     Dates: start: 20110808
  6. PREDNISOLONE [Concomitant]
     Route: 048
     Dates: start: 20110810
  7. ACETYLIC AC [Concomitant]
     Indication: THROMBOSIS PROPHYLAXIS
     Dosage: 75 MILLIGRAM
     Route: 048
     Dates: start: 20110623

REACTIONS (1)
  - LUNG DISORDER [None]
